FAERS Safety Report 24761856 (Version 1)
Quarter: 2024Q4

REPORT INFORMATION
  Report Type: Spontaneous
  Country: US (occurrence: US)
  Receive Date: 20241221
  Receipt Date: 20241221
  Transmission Date: 20250114
  Serious: No
  Sender: ABBVIE
  Company Number: US-ABBVIE-6056625

PATIENT

DRUGS (3)
  1. BOTOX COSMETIC [Suspect]
     Active Substance: ONABOTULINUMTOXINA
     Indication: Product used for unknown indication
     Dosage: TIME INTERVAL: AS NECESSARY: 2 WEEKS LATER RE-TREATED WITH 64 UNITS.?1ML RECON IN ALL AREAS WITH ...
     Route: 065
  2. BOTOX COSMETIC [Suspect]
     Active Substance: ONABOTULINUMTOXINA
     Indication: Product used for unknown indication
     Dosage: TIME INTERVAL: AS NECESSARY: 1.25ML RECON FRONTALIS?USED 0.9% BACTERIOSTAC SALINE?64 UNITS
     Route: 065
  3. BOTOX COSMETIC [Suspect]
     Active Substance: ONABOTULINUMTOXINA
     Indication: Product used for unknown indication
     Dosage: TIME INTERVAL: AS NECESSARY: 1ML RECON GLABELLA AND LATERAL CANTHUS?USED 0.9% BACTERIOSTAC SALINE...
     Route: 065

REACTIONS (1)
  - Drug ineffective [Unknown]
